FAERS Safety Report 7404293-8 (Version None)
Quarter: 2011Q2

REPORT INFORMATION
  Report Type: 
  Country: None (occurrence: None)
  Receive Date: 20110408
  Receipt Date: 20110331
  Transmission Date: 20111010
  Serious: Yes (Hospitalization)
  Sender: FDA-Public Use
  Company Number: US-B.I. PHARMACEUTICALS,INC./RIDGEFIELD-2011-BP-04744BP

PATIENT
  Sex: Male

DRUGS (9)
  1. LIPITOR [Concomitant]
     Indication: BLOOD CHOLESTEROL INCREASED
  2. FERREX [Concomitant]
     Indication: MINERAL SUPPLEMENTATION
  3. METOPROLOL [Concomitant]
     Indication: ATRIAL FIBRILLATION
  4. ASPIRIN [Concomitant]
     Dosage: 162 MG
  5. FISH OIL [Concomitant]
     Indication: SUPPLEMENTATION THERAPY
  6. XALATAN [Concomitant]
     Indication: GLAUCOMA
  7. NIASPAN [Concomitant]
     Indication: BLOOD CHOLESTEROL INCREASED
  8. PRADAXA [Suspect]
     Indication: ATRIAL FIBRILLATION
     Dosage: 300 MG
     Route: 048
     Dates: start: 20110201, end: 20110201
  9. LOSARTAN POTASSIUM [Concomitant]
     Indication: HYPERTENSION

REACTIONS (1)
  - HAEMOGLOBIN DECREASED [None]
